FAERS Safety Report 17623398 (Version 10)
Quarter: 2020Q3

REPORT INFORMATION
  Report Type: Spontaneous
  Country: CN (occurrence: CN)
  Receive Date: 20200403
  Receipt Date: 20200805
  Transmission Date: 20201105
  Serious: Yes (Death, Life-Threatening, Hospitalization)
  Sender: FDA-Public Use
  Company Number: CN-CELGENEUS-CHN-20200309867

PATIENT
  Age: 68 Year
  Sex: Male
  Weight: 63 kg

DRUGS (19)
  1. ABRAXANE [Suspect]
     Active Substance: PACLITAXEL
     Indication: NON-SMALL CELL LUNG CANCER
     Dosage: 100 MICROGRAM/SQ. METER
     Route: 041
     Dates: start: 20191203, end: 20200228
  2. ABRAXANE [Suspect]
     Active Substance: PACLITAXEL
     Dosage: 163 MILLIGRAM
     Route: 041
     Dates: start: 20191203, end: 20191203
  3. ABRAXANE [Suspect]
     Active Substance: PACLITAXEL
     Dosage: 164 MILLIGRAM
     Route: 041
     Dates: start: 20200115, end: 20200115
  4. CARBOPLATIN. [Suspect]
     Active Substance: CARBOPLATIN
     Indication: NON-SMALL CELL LUNG CANCER
     Dosage: AUC=5
     Route: 041
     Dates: start: 20191203, end: 20200228
  5. SERPLULIMAB. [Suspect]
     Active Substance: SERPLULIMAB
     Indication: NON-SMALL CELL LUNG CANCER
     Dosage: 4.5 MILLIGRAM/KILOGRAM
     Route: 041
     Dates: start: 20191203, end: 20200228
  6. ABRAXANE [Suspect]
     Active Substance: PACLITAXEL
     Dosage: 163 MILLIGRAM
     Route: 041
     Dates: start: 20191217, end: 20191217
  7. ABRAXANE [Suspect]
     Active Substance: PACLITAXEL
     Dosage: 163 MILLIGRAM
     Route: 041
     Dates: start: 20200212, end: 20200212
  8. ABRAXANE [Suspect]
     Active Substance: PACLITAXEL
     Dosage: 164 MILLIGRAM
     Route: 041
     Dates: start: 20200228, end: 20200228
  9. CARBOPLATIN. [Suspect]
     Active Substance: CARBOPLATIN
     Dosage: 530 MILLIGRAM
     Route: 041
     Dates: start: 20191203, end: 20191203
  10. CARBOPLATIN. [Suspect]
     Active Substance: CARBOPLATIN
     Dosage: 590 MILLIGRAM
     Route: 041
     Dates: start: 20191224, end: 20191224
  11. CARBOPLATIN. [Suspect]
     Active Substance: CARBOPLATIN
     Dosage: 590 MILLIGRAM
     Route: 041
     Dates: start: 20200228, end: 20200228
  12. RECOMBINANT HUMAN THROMBOPOIETIN INJECTION [Concomitant]
     Indication: THROMBOCYTOPENIA
     Dosage: 15000 IU (INTERNATIONAL UNIT)
     Route: 058
     Dates: start: 20200305
  13. ABRAXANE [Suspect]
     Active Substance: PACLITAXEL
     Dosage: 164 MILLIGRAM
     Route: 041
     Dates: start: 20200107, end: 20200107
  14. ABRAXANE [Suspect]
     Active Substance: PACLITAXEL
     Dosage: 164 MILLIGRAM
     Route: 041
     Dates: start: 20191224, end: 20191224
  15. SHENG XUE BAN [Concomitant]
     Indication: THROMBOCYTOPENIA
     Dosage: 5.4 GRAM
     Route: 048
     Dates: start: 20200305
  16. ABRAXANE [Suspect]
     Active Substance: PACLITAXEL
     Route: 041
     Dates: start: 20200205, end: 20200205
  17. ABRAXANE [Suspect]
     Active Substance: PACLITAXEL
     Dosage: 164 MILLIGRAM
     Route: 041
     Dates: start: 20200219, end: 20200219
  18. RECOMBINANT HUMAN GRANULOCYTE COLONY?STIMULATING FACTOR [Concomitant]
     Active Substance: GRANULOCYTE COLONY-STIMULATING FACTOR NOS
     Indication: LEUKOPENIA
     Dosage: 300 MICROGRAM
     Route: 058
     Dates: start: 20200302, end: 20200304
  19. RECOMBINANT HUMAN GRANULOCYTE COLONY?STIMULATING FACTOR [Concomitant]
     Active Substance: GRANULOCYTE COLONY-STIMULATING FACTOR NOS
     Dosage: 300 MICROGRAM
     Route: 058
     Dates: start: 20200308, end: 20200313

REACTIONS (2)
  - Immune thrombocytopenia [Not Recovered/Not Resolved]
  - Immune-mediated enterocolitis [Fatal]

NARRATIVE: CASE EVENT DATE: 20200224
